FAERS Safety Report 8924583 (Version 1)
Quarter: 2012Q4

REPORT INFORMATION
  Report Type: Spontaneous
  Country: US (occurrence: None)
  Receive Date: 20121116
  Receipt Date: 20121116
  Transmission Date: 20130627
  Serious: Yes (Other)
  Sender: FDA-Public Use
  Company Number: 2012SA081997

PATIENT
  Age: 36 Year
  Sex: Female

DRUGS (1)
  1. ICY HOT [Suspect]
     Indication: SHOULDER PAIN
     Dates: start: 20121103, end: 20121107

REACTIONS (5)
  - Application site vesicles [None]
  - Application site erythema [None]
  - Application site burn [None]
  - Application site warmth [None]
  - Application site pruritus [None]
